FAERS Safety Report 21307792 (Version 2)
Quarter: 2022Q3

REPORT INFORMATION
  Report Type: Spontaneous
  Country: AR (occurrence: AR)
  Receive Date: 20220908
  Receipt Date: 20220912
  Transmission Date: 20221026
  Serious: Yes (Death, Other)
  Sender: FDA-Public Use
  Company Number: AR-MYLANLABS-2022M1092071

PATIENT
  Age: 54 Year
  Sex: Male

DRUGS (1)
  1. CLOZAPINE [Suspect]
     Active Substance: CLOZAPINE
     Indication: Product used for unknown indication
     Dosage: UNK
     Route: 065
     Dates: start: 20060201

REACTIONS (7)
  - Death [Fatal]
  - Apallic syndrome [Unknown]
  - Cerebrovascular accident [Unknown]
  - Abnormal behaviour [Unknown]
  - Feeding disorder [Unknown]
  - Motor dysfunction [Unknown]
  - Confusional state [Unknown]

NARRATIVE: CASE EVENT DATE: 20220901
